FAERS Safety Report 8472700-8 (Version None)
Quarter: 2012Q2

REPORT INFORMATION
  Report Type: 
  Country: None (occurrence: None)
  Receive Date: 20120323
  Receipt Date: 20111024
  Transmission Date: 20120825
  Serious: Yes (Life-Threatening)
  Sender: FDA-Public Use
  Company Number: 163-21880-11102999

PATIENT
  Age: 67 Year
  Sex: Male

DRUGS (3)
  1. REVLIMID [Suspect]
     Indication: MULTIPLE MYELOMA
     Dosage: 25 MG, 1 IN 1 D, PO ; 15 MG, 1 IN 1 D, PO ; 15 MG, DAILY X 21 DAYS, OFF 7 DAYS, PO
     Route: 048
     Dates: start: 20100301
  2. REVLIMID [Suspect]
     Indication: MULTIPLE MYELOMA
     Dosage: 25 MG, 1 IN 1 D, PO ; 15 MG, 1 IN 1 D, PO ; 15 MG, DAILY X 21 DAYS, OFF 7 DAYS, PO
     Route: 048
     Dates: start: 20100101
  3. REVLIMID [Suspect]
     Indication: MULTIPLE MYELOMA
     Dosage: 25 MG, 1 IN 1 D, PO ; 15 MG, 1 IN 1 D, PO ; 15 MG, DAILY X 21 DAYS, OFF 7 DAYS, PO
     Route: 048
     Dates: start: 20101101, end: 20111011

REACTIONS (1)
  - RED BLOOD CELL COUNT DECREASED [None]
